FAERS Safety Report 15559305 (Version 1)
Quarter: 2018Q4

REPORT INFORMATION
  Report Type: Spontaneous
  Country: BR (occurrence: BR)
  Receive Date: 20181029
  Receipt Date: 20181029
  Transmission Date: 20190205
  Serious: Yes (Other)
  Sender: FDA-Public Use
  Company Number: BR-ROCHE-2205206

PATIENT
  Sex: Male

DRUGS (6)
  1. FOLINIC ACID [Concomitant]
     Active Substance: LEUCOVORIN
  2. OXALIPLATIN. [Concomitant]
     Active Substance: OXALIPLATIN
  3. AVASTIN [Suspect]
     Active Substance: BEVACIZUMAB
     Indication: RECTAL ADENOCARCINOMA
     Route: 065
     Dates: start: 201310
  4. 5-FLUOROURACIL [Concomitant]
     Active Substance: FLUOROURACIL
  5. LEUCOVORIN. [Concomitant]
     Active Substance: LEUCOVORIN
  6. CETUXIMAB. [Concomitant]
     Active Substance: CETUXIMAB

REACTIONS (1)
  - Blood bilirubin increased [Unknown]
